FAERS Safety Report 24751008 (Version 1)
Quarter: 2024Q4

REPORT INFORMATION
  Report Type: Spontaneous
  Country: CN (occurrence: CN)
  Receive Date: 20241219
  Receipt Date: 20241219
  Transmission Date: 20250114
  Serious: Yes (Other)
  Sender: ABBVIE
  Company Number: CN-ABBVIE-6050130

PATIENT
  Age: 71 Year
  Sex: Male

DRUGS (3)
  1. VENETOCLAX [Suspect]
     Active Substance: VENETOCLAX
     Indication: Acute myeloid leukaemia
     Dosage: 400 MILLIGRAM
     Route: 048
     Dates: start: 20241119, end: 20241204
  2. GRANULOCYTE COLONY-STIMULATING FACTOR NOS [Concomitant]
     Active Substance: GRANULOCYTE COLONY-STIMULATING FACTOR NOS
     Indication: White blood cell count increased
     Dosage: 150 UG IH
  3. OPRELVEKIN [Concomitant]
     Active Substance: OPRELVEKIN
     Indication: Platelet count decreased
     Dosage: 1.5 MG FOR INJECTION IH

REACTIONS (1)
  - Myelosuppression [Unknown]

NARRATIVE: CASE EVENT DATE: 20241204
